FAERS Safety Report 5510390-4 (Version None)
Quarter: 2007Q4

REPORT INFORMATION
  Report Type: 
  Country: None (occurrence: None)
  Receive Date: 20071108
  Receipt Date: 20071011
  Transmission Date: 20080405
  Serious: Yes (Hospitalization)
  Sender: FDA-Public Use
  Company Number: US-GENENTECH-245823

PATIENT
  Sex: Male
  Weight: 99.773 kg

DRUGS (2)
  1. AVASTIN [Suspect]
     Indication: MACULAR DEGENERATION
     Dosage: 0.5 MG, 1/MONTH
     Dates: start: 20060720
  2. LUCENTIS [Suspect]
     Indication: MACULAR DEGENERATION
     Dosage: 500 A?G, UNK
     Dates: start: 20061019

REACTIONS (1)
  - CEREBROVASCULAR ACCIDENT [None]
